FAERS Safety Report 13603878 (Version 2)
Quarter: 2017Q2

REPORT INFORMATION
  Report Type: Report from Study
  Country: US (occurrence: US)
  Receive Date: 20170602
  Receipt Date: 20170605
  Transmission Date: 20170830
  Serious: Yes (Hospitalization)
  Sender: FDA-Public Use
  Company Number: US-ROCHE-1942975

PATIENT
  Age: 88 Year
  Sex: Male
  Weight: 52.21 kg

DRUGS (2)
  1. ERIVEDGE [Suspect]
     Active Substance: VISMODEGIB
     Indication: BASAL CELL CARCINOMA
  2. ERIVEDGE [Suspect]
     Active Substance: VISMODEGIB
     Indication: SKIN CANCER
     Dosage: ONGOING: NO
     Route: 048
     Dates: end: 201704

REACTIONS (1)
  - Ulcer haemorrhage [Recovered/Resolved]

NARRATIVE: CASE EVENT DATE: 20170416
